FAERS Safety Report 8589997-6 (Version None)
Quarter: 2012Q3

REPORT INFORMATION
  Report Type: 
  Country: None (occurrence: None)
  Receive Date: 20120813
  Receipt Date: 20120808
  Transmission Date: 20120928
  Serious: Yes (Death)
  Sender: FDA-Public Use
  Company Number: CA-ELI_LILLY_AND_COMPANY-CA201208002702

PATIENT

DRUGS (1)
  1. ADCIRCA [Suspect]

REACTIONS (1)
  - DEATH [None]
